FAERS Safety Report 16697537 (Version 1)
Quarter: 2019Q3

REPORT INFORMATION
  Report Type: Spontaneous
  Country: US (occurrence: US)
  Receive Date: 20190626
  Receipt Date: 20190626
  Transmission Date: 20191004
  Serious: Yes (Other)
  Sender: FDA-Public Use
  Company Number: None

PATIENT
  Age: 56 Year
  Sex: Male
  Weight: 108.86 kg

DRUGS (8)
  1. LISINOPRIL. [Concomitant]
     Active Substance: LISINOPRIL
  2. MONTELUKAST [Concomitant]
     Active Substance: MONTELUKAST SODIUM
  3. POTASSIUM CITRATE, 10MEQ TB VEN GENERIC FOR UROCIT-K 10 [Suspect]
     Active Substance: POTASSIUM CITRATE
     Indication: NEPHROLITHIASIS
     Route: 048
     Dates: start: 20190325, end: 20190626
  4. ALLOPURINOL. [Concomitant]
     Active Substance: ALLOPURINOL
  5. NORVASC [Concomitant]
     Active Substance: AMLODIPINE BESYLATE
  6. PULMICORT TURBUHALER [Concomitant]
     Active Substance: BUDESONIDE
  7. PRILOSEC OTC [Concomitant]
     Active Substance: OMEPRAZOLE MAGNESIUM
  8. POTASSIUM CITRATE. [Concomitant]
     Active Substance: POTASSIUM CITRATE

REACTIONS (4)
  - Chemical burn [None]
  - Burning sensation [None]
  - Scab [None]
  - Petechiae [None]

NARRATIVE: CASE EVENT DATE: 20190625
